FAERS Safety Report 6443576-5 (Version None)
Quarter: 2009Q4

REPORT INFORMATION
  Report Type: 
  Country: None (occurrence: None)
  Receive Date: 20091117
  Receipt Date: 20091104
  Transmission Date: 20100525
  Serious: Yes (Death)
  Sender: FDA-Public Use
  Company Number: US-PFIZER INC-2009240316

PATIENT
  Sex: Female
  Weight: 55.329 kg

DRUGS (1)
  1. SUNITINIB MALATE [Suspect]
     Indication: RENAL CELL CARCINOMA
     Dosage: 50 MG, DAILY, EVERY DAY, TDD 50 MG
     Dates: start: 20081001

REACTIONS (2)
  - DISEASE PROGRESSION [None]
  - RENAL CANCER [None]
